FAERS Safety Report 10091925 (Version 2)
Quarter: 2015Q3

REPORT INFORMATION
  Report Type: Spontaneous
  Country: US (occurrence: US)
  Receive Date: 20140421
  Receipt Date: 20150814
  Transmission Date: 20151125
  Serious: No
  Sender: FDA-Public Use
  Company Number: US-GILEAD-2013-0069924

PATIENT
  Age: 67 Year
  Sex: Male

DRUGS (3)
  1. LETAIRIS [Suspect]
     Active Substance: AMBRISENTAN
     Indication: SARCOIDOSIS
     Dosage: 5 MG, QD
     Route: 048
     Dates: start: 20120618
  2. REVATIO [Concomitant]
     Active Substance: SILDENAFIL CITRATE
  3. TYLENOL ARTHRITIS PAIN [Concomitant]
     Active Substance: ACETAMINOPHEN

REACTIONS (3)
  - Arthritis [Unknown]
  - Nasal congestion [Unknown]
  - Pain [Unknown]
